FAERS Safety Report 5780529-4 (Version None)
Quarter: 2008Q2

REPORT INFORMATION
  Report Type: 
  Country: None (occurrence: None)
  Receive Date: 20080620
  Receipt Date: 20080611
  Transmission Date: 20081010
  Serious: Yes (Death, Hospitalization)
  Sender: FDA-Public Use
  Company Number: CA-ABBOTT-08P-028-0457026-00

PATIENT
  Sex: Male
  Weight: 40.86 kg

DRUGS (8)
  1. LUPRON DEPOT [Suspect]
     Indication: DRUG USE FOR UNKNOWN INDICATION
     Dates: start: 20050715, end: 20080227
  2. SERETIDE [Concomitant]
     Indication: DRUG USE FOR UNKNOWN INDICATION
     Route: 055
  3. TIOTROPIUM BROMIDE [Concomitant]
     Indication: DRUG USE FOR UNKNOWN INDICATION
     Route: 055
  4. ALBUTEROL [Concomitant]
     Indication: DRUG USE FOR UNKNOWN INDICATION
  5. OXYCODONE HCL [Concomitant]
     Indication: PAIN
     Dosage: EVERY 4-6 HOURS AS NEEDED FOR PAIN
  6. CLONAZEPAM [Concomitant]
     Indication: ANXIETY
     Dosage: EVERY 8-12 HOURS AS NEEDED.
  7. ASPIRIN [Concomitant]
     Indication: PAIN
     Dosage: 1-2 TABS AS NEEDED
     Route: 048
  8. CALCIUM WITH VITAMIN D [Concomitant]
     Indication: DRUG USE FOR UNKNOWN INDICATION
     Route: 048

REACTIONS (4)
  - ASTHENIA [None]
  - CHRONIC OBSTRUCTIVE PULMONARY DISEASE [None]
  - DYSPNOEA [None]
  - WEIGHT DECREASED [None]
